FAERS Safety Report 7834426-0 (Version None)
Quarter: 2011Q4

REPORT INFORMATION
  Report Type: 
  Country: None (occurrence: None)
  Receive Date: 20111024
  Receipt Date: 20111012
  Transmission Date: 20120403
  Serious: Yes (Other)
  Sender: FDA-Public Use
  Company Number: US-ELI_LILLY_AND_COMPANY-US201110003432

PATIENT
  Sex: Female

DRUGS (3)
  1. LANTUS [Concomitant]
  2. HUMALOG [Suspect]
     Dosage: UNK, PRN
  3. HUMALOG [Suspect]
     Indication: DIABETES MELLITUS
     Dosage: UNK
     Dates: start: 19960101

REACTIONS (6)
  - DRUG DOSE OMISSION [None]
  - BLOOD GLUCOSE DECREASED [None]
  - RENAL TRANSPLANT [None]
  - MALAISE [None]
  - BLOOD GLUCOSE INCREASED [None]
  - DIZZINESS [None]
